FAERS Safety Report 9638127 (Version 1)
Quarter: 2013Q4

REPORT INFORMATION
  Report Type: Spontaneous
  Country: US (occurrence: US)
  Receive Date: 20131022
  Receipt Date: 20131022
  Transmission Date: 20140711
  Serious: No
  Sender: FDA-Public Use
  Company Number: US-PFIZER INC-2013297918

PATIENT
  Age: 71 Year
  Sex: Female
  Weight: 73.47 kg

DRUGS (1)
  1. ADVIL [Suspect]
     Indication: SCIATICA
     Dosage: UNK, AS NEEDED

REACTIONS (3)
  - Hypertension [Unknown]
  - Nausea [Unknown]
  - Abdominal discomfort [Unknown]
